FAERS Safety Report 10590659 (Version 1)
Quarter: 2014Q4

REPORT INFORMATION
  Report Type: Report from Study
  Country: BR (occurrence: BR)
  Receive Date: 20141118
  Receipt Date: 20141118
  Transmission Date: 20150529
  Serious: Yes (Other)
  Sender: FDA-Public Use
  Company Number: BR-BAYER-2014-165423

PATIENT
  Age: 95 Year
  Sex: Female
  Weight: 54 kg

DRUGS (5)
  1. PANTOPRAZOLE [Concomitant]
     Active Substance: PANTOPRAZOLE SODIUM
     Indication: ABDOMINAL DISCOMFORT
     Dosage: 1 DF, QD
     Route: 048
     Dates: start: 1999
  2. NEXAVAR [Suspect]
     Active Substance: SORAFENIB
     Indication: HEPATIC NEOPLASM
     Dosage: 400 MG, BID
     Dates: start: 201410
  3. NEXAVAR [Suspect]
     Active Substance: SORAFENIB
     Indication: HEPATIC NEOPLASM
     Dosage: 200 MG, BID
     Route: 048
     Dates: start: 201410, end: 201410
  4. EXELON [Concomitant]
     Active Substance: RIVASTIGMINE TARTRATE
     Indication: DEMENTIA ALZHEIMER^S TYPE
     Dosage: 2 DF, QD
     Route: 048
     Dates: start: 1999
  5. SEROQUEL [Concomitant]
     Active Substance: QUETIAPINE FUMARATE
     Indication: DEMENTIA ALZHEIMER^S TYPE
     Dosage: 2 DF, QD
     Route: 048
     Dates: start: 1999

REACTIONS (5)
  - Somnolence [Recovering/Resolving]
  - Diarrhoea [Recovering/Resolving]
  - Weight decreased [Recovering/Resolving]
  - Aphagia [Recovering/Resolving]
  - Nausea [Recovering/Resolving]

NARRATIVE: CASE EVENT DATE: 201410
